FAERS Safety Report 23668383 (Version 1)
Quarter: 2024Q1

REPORT INFORMATION
  Report Type: Spontaneous
  Country: DE (occurrence: DE)
  Receive Date: 20240325
  Receipt Date: 20240325
  Transmission Date: 20240410
  Serious: Yes (Life-Threatening, Hospitalization, Other)
  Sender: FDA-Public Use
  Company Number: DE-BRISTOL-MYERS SQUIBB COMPANY-BMS-2015-03992

PATIENT
  Age: 74 Year
  Sex: Male

DRUGS (19)
  1. ALFUZOSIN [Concomitant]
     Active Substance: ALFUZOSIN
     Indication: Product used for unknown indication
     Dosage: 10 MG, QD
     Route: 048
     Dates: start: 20120101
  2. FINASTERIDE [Concomitant]
     Active Substance: FINASTERIDE
     Indication: Product used for unknown indication
     Dosage: 5 MG, QD
     Route: 048
     Dates: start: 20120101
  3. LITHIUM [Concomitant]
     Active Substance: LITHIUM
     Indication: Product used for unknown indication
     Dosage: UNK
     Route: 065
  4. ABILIFY [Interacting]
     Active Substance: ARIPIPRAZOLE
     Indication: Product used for unknown indication
     Dosage: 10 MG, QD
     Route: 048
     Dates: start: 20131101, end: 20131112
  5. ABILIFY [Interacting]
     Active Substance: ARIPIPRAZOLE
     Dosage: 20 MG, QD
     Route: 048
     Dates: start: 20131113, end: 20131115
  6. ABILIFY [Interacting]
     Active Substance: ARIPIPRAZOLE
     Dosage: 30 MG, QD
     Route: 048
     Dates: start: 20131116, end: 20131215
  7. QUETIAPINE [Interacting]
     Active Substance: QUETIAPINE
     Indication: Product used for unknown indication
     Dosage: 100 MG, QD 22-NOV-13 =400MG/DAY
     Route: 048
     Dates: start: 20131104, end: 20131105
  8. QUETIAPINE [Interacting]
     Active Substance: QUETIAPINE
     Dosage: 200 MG, QD 22-NOV-13 =400MG/DAY
     Route: 048
     Dates: start: 20131106, end: 20131108
  9. QUETIAPINE [Interacting]
     Active Substance: QUETIAPINE
     Dosage: 300 MG, QD 22-NOV-13 =400MG/DAY
     Route: 048
     Dates: start: 20131109, end: 20131112
  10. QUETIAPINE [Interacting]
     Active Substance: QUETIAPINE
     Dosage: 400 MG, QD 22-NOV-13 =400MG/DAY
     Route: 048
     Dates: start: 20131113, end: 20131115
  11. QUETIAPINE [Interacting]
     Active Substance: QUETIAPINE
     Dosage: 400 MG, QD 22-NOV-13 =400MG/DAY
     Route: 048
     Dates: start: 20131122
  12. QUETIAPINE [Interacting]
     Active Substance: QUETIAPINE
     Dosage: 450 MG, QD 22-NOV-13 =400MG/DAY
     Route: 048
     Dates: start: 20131116, end: 20131118
  13. QUETIAPINE [Interacting]
     Active Substance: QUETIAPINE
     Dosage: 50 MG, QD 22-NOV-13 =400MG/DAY
     Route: 048
     Dates: start: 20131103
  14. QUETIAPINE [Interacting]
     Active Substance: QUETIAPINE
     Dosage: 500 MG, QD 22-NOV-13 =400MG/DAY
     Route: 048
     Dates: start: 20131119, end: 20131121
  15. VALPROATE [Interacting]
     Active Substance: VALPROIC ACID
     Dosage: 1600 MG, QD 22-NOV-13 =400MG/DAY
     Route: 048
     Dates: start: 20131102, end: 20131110
  16. VALPROATE [Interacting]
     Active Substance: VALPROIC ACID
     Dosage: 1800 MG, QD 02-APR-13: 1800MG/DAY
     Route: 048
     Dates: start: 20140316, end: 20140401
  17. VALPROATE [Interacting]
     Active Substance: VALPROIC ACID
     Dosage: 1800 MG, QD 02-APR-13: 1800MG/DAY
     Route: 048
     Dates: start: 20150402
  18. VALPROATE [Interacting]
     Active Substance: VALPROIC ACID
     Dosage: 2400 MG, QD 02-APR-13: 1800MG/DAY
     Route: 048
     Dates: start: 20131111, end: 20140315
  19. VALPROATE [Interacting]
     Active Substance: VALPROIC ACID
     Indication: Product used for unknown indication
     Dosage: 900 MG, QD 02-APR-13 : 1800MG/DAY
     Route: 048
     Dates: start: 20130301, end: 20131101

REACTIONS (3)
  - Drug interaction [Unknown]
  - Parkinsonism [Unknown]
  - Coma [Recovered/Resolved]

NARRATIVE: CASE EVENT DATE: 20131121
